FAERS Safety Report 5981292-4 (Version None)
Quarter: 2008Q4

REPORT INFORMATION
  Report Type: 
  Country: None (occurrence: None)
  Receive Date: 20081205
  Receipt Date: 20081124
  Transmission Date: 20090506
  Serious: Yes (Other)
  Sender: FDA-Public Use
  Company Number: CA-JNJFOC-20081105801

PATIENT
  Sex: Male
  Weight: 81.65 kg

DRUGS (3)
  1. REMICADE [Suspect]
     Dosage: 4TH INFUSION GIVEN ON AN UNSPECIFIED DATE AND DELAYED A FEW WEEKS.
     Route: 042
  2. REMICADE [Suspect]
     Indication: SAPHO SYNDROME
     Dosage: 3 INFUSIONS GIVEN AT WEEK 0, 2, AND 6.
     Route: 042
  3. COLCHICINE [Concomitant]

REACTIONS (6)
  - LUPUS-LIKE SYNDROME [None]
  - PAIN IN JAW [None]
  - RENAL DISORDER [None]
  - SYSTEMIC LUPUS ERYTHEMATOSUS [None]
  - THROAT TIGHTNESS [None]
  - TONSILLITIS [None]
